FAERS Safety Report 22685304 (Version 2)
Quarter: 2025Q3

REPORT INFORMATION
  Report Type: Spontaneous
  Country: EU (occurrence: EU)
  Receive Date: 20230710
  Receipt Date: 20250704
  Transmission Date: 20251020
  Serious: No
  Sender: ORGANON
  Company Number: None

PATIENT
  Age: 54 Year
  Sex: Female

DRUGS (14)
  1. MIRTAZAPINE [Suspect]
     Active Substance: MIRTAZAPINE
     Indication: Obsessive-compulsive disorder
     Route: 048
     Dates: start: 201504
  2. MIRTAZAPINE [Suspect]
     Active Substance: MIRTAZAPINE
     Indication: Mixed anxiety and depressive disorder
  3. ENALAPRIL MALEATE [Suspect]
     Active Substance: ENALAPRIL MALEATE
     Indication: Obsessive-compulsive disorder
     Route: 048
     Dates: start: 201504
  4. ENALAPRIL MALEATE [Suspect]
     Active Substance: ENALAPRIL MALEATE
     Indication: Mixed anxiety and depressive disorder
  5. LEVOTHYROXINE [Concomitant]
     Active Substance: LEVOTHYROXINE
     Indication: Obsessive-compulsive disorder
     Dates: start: 201504
  6. LEVOTHYROXINE [Concomitant]
     Active Substance: LEVOTHYROXINE
     Indication: Mixed anxiety and depressive disorder
  7. FLUOXETINE [Concomitant]
     Active Substance: FLUOXETINE HYDROCHLORIDE
     Indication: Obsessive-compulsive disorder
     Dates: start: 201504
  8. FLUOXETINE [Concomitant]
     Active Substance: FLUOXETINE HYDROCHLORIDE
     Indication: Mixed anxiety and depressive disorder
  9. RISPERIDONE [Concomitant]
     Active Substance: RISPERIDONE
     Indication: Obsessive-compulsive disorder
     Dates: start: 201504
  10. RISPERIDONE [Concomitant]
     Active Substance: RISPERIDONE
     Indication: Mixed anxiety and depressive disorder
  11. CLONAZEPAM [Concomitant]
     Active Substance: CLONAZEPAM
     Indication: Obsessive-compulsive disorder
     Dates: start: 201504
  12. CLONAZEPAM [Concomitant]
     Active Substance: CLONAZEPAM
     Indication: Mixed anxiety and depressive disorder
  13. ARIPIPRAZOLE [Concomitant]
     Active Substance: ARIPIPRAZOLE
     Indication: Obsessive-compulsive disorder
     Dates: start: 201504
  14. ARIPIPRAZOLE [Concomitant]
     Active Substance: ARIPIPRAZOLE
     Indication: Mixed anxiety and depressive disorder

REACTIONS (1)
  - Product use in unapproved indication [Unknown]

NARRATIVE: CASE EVENT DATE: 20150401
